FAERS Safety Report 7642449-X (Version None)
Quarter: 2011Q3

REPORT INFORMATION
  Report Type: 
  Country: None (occurrence: None)
  Receive Date: 20110728
  Receipt Date: 20110506
  Transmission Date: 20111222
  Serious: No
  Sender: FDA-Public Use
  Company Number: US-MYLANLABS-2011S1009582

PATIENT
  Age: 56 Year
  Sex: Female

DRUGS (1)
  1. LEVOTHYROXINE SODIUM [Suspect]
     Indication: BLOOD PARATHYROID HORMONE DECREASED
     Route: 048
     Dates: start: 20110101, end: 20110401

REACTIONS (1)
  - SENSATION OF FOREIGN BODY [None]
